FAERS Safety Report 6747965-0 (Version None)
Quarter: 2010Q2

REPORT INFORMATION
  Report Type: 
  Country: None (occurrence: None)
  Receive Date: 20100528
  Receipt Date: 20100527
  Transmission Date: 20101027
  Serious: Yes (Other)
  Sender: FDA-Public Use
  Company Number: DE-MERCK-1005DEU00086

PATIENT
  Age: 71 Year
  Sex: Female
  Weight: 82 kg

DRUGS (18)
  1. ZOCOR [Suspect]
     Route: 048
     Dates: end: 20070609
  2. ARNICA [Concomitant]
     Route: 048
     Dates: start: 20070620, end: 20070625
  3. ARSENIC TRIIODIDE [Concomitant]
     Route: 058
     Dates: start: 20070620, end: 20070625
  4. ASPIRIN AND DIPYRIDAMOLE [Concomitant]
     Route: 048
     Dates: end: 20070626
  5. BETAHISTINE [Suspect]
     Route: 048
     Dates: end: 20070609
  6. CHAMOMILE [Concomitant]
     Route: 058
     Dates: start: 20070620, end: 20070625
  7. DIMETHINDENE MALEATE [Concomitant]
     Route: 048
     Dates: start: 20070606, end: 20070614
  8. ENOXAPARIN SODIUM [Concomitant]
     Route: 058
     Dates: start: 20070608, end: 20070622
  9. ESTRADIOL VALERATE AND ESTRIOL AND LEVONORGESTREL [Suspect]
     Route: 048
     Dates: end: 20070606
  10. IRBESARTAN [Concomitant]
     Route: 048
     Dates: end: 20070609
  11. TORSEMIDE [Concomitant]
     Route: 048
     Dates: start: 20070612, end: 20070625
  12. LEVOTHYROXINE SODIUM [Concomitant]
     Route: 048
  13. METOPROLOL TARTRATE [Concomitant]
     Route: 048
     Dates: start: 20070606, end: 20070626
  14. PANTOPRAZOLE SODIUM [Suspect]
     Route: 048
     Dates: end: 20070609
  15. PHENPROCOUMON [Concomitant]
     Route: 048
     Dates: start: 20070613, end: 20070613
  16. PHENPROCOUMON [Concomitant]
     Route: 048
     Dates: start: 20070614, end: 20070616
  17. PHENPROCOUMON [Concomitant]
     Route: 048
     Dates: start: 20070617, end: 20070625
  18. PHENPROCOUMON [Concomitant]
     Route: 048
     Dates: start: 20070626

REACTIONS (4)
  - ERYTHEMA [None]
  - HYPERSENSITIVITY [None]
  - SWELLING FACE [None]
  - WRONG TECHNIQUE IN DRUG USAGE PROCESS [None]
